FAERS Safety Report 6262624-9 (Version None)
Quarter: 2009Q3

REPORT INFORMATION
  Report Type: 
  Country: None (occurrence: None)
  Receive Date: 20090709
  Receipt Date: 20070627
  Transmission Date: 20100115
  Serious: Yes (Death, Congenital Anomaly, Other)
  Sender: FDA-Public Use
  Company Number: GB-AVENTIS-200715298GDDC

PATIENT

DRUGS (3)
  1. GLYBURIDE [Suspect]
     Indication: TYPE 2 DIABETES MELLITUS
     Dosage: DOSE: UNK
     Route: 048
  2. METFORMIN HCL [Suspect]
     Indication: TYPE 2 DIABETES MELLITUS
     Dosage: DOSE: UNK
     Route: 048
  3. INSULIN [Suspect]
     Indication: TYPE 2 DIABETES MELLITUS

REACTIONS (7)
  - CONGENITAL ANOMALY [None]
  - DEATH NEONATAL [None]
  - HYPOGLYCAEMIA NEONATAL [None]
  - JAUNDICE NEONATAL [None]
  - MACROSOMIA [None]
  - PRE-ECLAMPSIA [None]
  - STILLBIRTH [None]
